FAERS Safety Report 5292373-5 (Version None)
Quarter: 2007Q2

REPORT INFORMATION
  Report Type: 
  Country: None (occurrence: None)
  Receive Date: 20070410
  Receipt Date: 20070329
  Transmission Date: 20071010
  Serious: Yes (Hospitalization, Other)
  Sender: FDA-Public Use
  Company Number: US-PFIZER INC-2006003362

PATIENT
  Sex: Female

DRUGS (4)
  1. NEURONTIN [Suspect]
     Indication: DEPRESSION
  2. NEURONTIN [Suspect]
     Indication: MOOD SWINGS
  3. TYLENOL [Suspect]
  4. ALCOHOL [Suspect]

REACTIONS (8)
  - ALCOHOL POISONING [None]
  - DRUG INEFFECTIVE FOR UNAPPROVED INDICATION [None]
  - GUN SHOT WOUND [None]
  - ILEUS [None]
  - INTENTIONAL OVERDOSE [None]
  - LUMBAR VERTEBRAL FRACTURE [None]
  - NEUROGENIC BLADDER [None]
  - SUICIDE ATTEMPT [None]
